FAERS Safety Report 9690414 (Version 1)
Quarter: 2013Q4

REPORT INFORMATION
  Report Type: Spontaneous
  Country: ES (occurrence: None)
  Receive Date: 20131113
  Receipt Date: 20131113
  Transmission Date: 20140711
  Serious: No
  Sender: FDA-Public Use
  Company Number: SYM-2013-12443

PATIENT
  Age: 76 Year
  Sex: Female

DRUGS (4)
  1. ACYCLOVIR [Suspect]
     Indication: INFECTION
  2. AMIKACIN [Suspect]
     Indication: INFECTION
  3. VANCOMYCIN [Suspect]
     Indication: INFECTION
  4. PANTOPRAZOLE [Suspect]
     Indication: PRODUCT USED FOR UNKNOWN INDICATION

REACTIONS (8)
  - Hypomagnesaemia [None]
  - Tremor [None]
  - Grand mal convulsion [None]
  - Pain [None]
  - Renal disorder [None]
  - Muscular weakness [None]
  - Irritability [None]
  - Muscle contractions involuntary [None]
